FAERS Safety Report 5579786-9 (Version None)
Quarter: 2008Q1

REPORT INFORMATION
  Report Type: 
  Country: None (occurrence: None)
  Receive Date: 20080102
  Receipt Date: 20071221
  Transmission Date: 20080703
  Serious: Yes (Other)
  Sender: FDA-Public Use
  Company Number: US-PFIZER INC-2007107830

PATIENT
  Sex: Male
  Weight: 129.7 kg

DRUGS (20)
  1. LYRICA [Suspect]
     Indication: DIABETIC NEUROPATHY
     Dates: start: 20071019, end: 20071219
  2. DARVOCET [Concomitant]
     Indication: DIABETIC NEUROPATHY
  3. LANTUS [Concomitant]
     Indication: DIABETES MELLITUS
  4. AMARYL [Concomitant]
  5. LISINOPRIL [Concomitant]
  6. CALAN [Concomitant]
  7. AVALIDE [Concomitant]
  8. COREG [Concomitant]
  9. LIPITOR [Concomitant]
  10. OMEGA-3 MARINE TRIGLYCERIDES [Concomitant]
  11. CINNAMON OIL [Concomitant]
  12. DOXYCYCLINE [Concomitant]
  13. METROGEL [Concomitant]
  14. ALPHAGAN [Concomitant]
     Route: 047
  15. LAXATIVES [Concomitant]
  16. COLACE [Concomitant]
  17. ACIPHEX [Concomitant]
  18. AMBIEN [Concomitant]
  19. NASONEX [Concomitant]
     Route: 045
  20. LORATADINE [Concomitant]

REACTIONS (10)
  - ALANINE AMINOTRANSFERASE INCREASED [None]
  - ASPARTATE AMINOTRANSFERASE INCREASED [None]
  - BLOOD GLUCOSE INCREASED [None]
  - DRUG INEFFECTIVE [None]
  - DRY MOUTH [None]
  - ECZEMA [None]
  - EYE DISORDER [None]
  - GLYCOSYLATED HAEMOGLOBIN INCREASED [None]
  - SEDATION [None]
  - SOMNOLENCE [None]
